FAERS Safety Report 8099698 (Version 3)
Quarter: 2016Q3

REPORT INFORMATION
  Report Type: Report from Study
  Country: DE (occurrence: DE)
  Receive Date: 20120911
  Receipt Date: 20160711
  Transmission Date: 20161109
  Serious: Yes (Death, Other)
  Sender: FDA-Public Use
  Company Number: DE-CELGENEUS-062-21880-11081370

PATIENT

DRUGS (7)
  1. DEXAMETHASONE. [Suspect]
     Active Substance: DEXAMETHASONE
     Indication: PLASMA CELL MYELOMA
     Route: 048
  2. MELPHALAN [Concomitant]
     Active Substance: MELPHALAN
     Indication: PLASMA CELL MYELOMA
     Route: 065
  3. ADRIAMYCIN [Suspect]
     Active Substance: DOXORUBICIN HYDROCHLORIDE
     Indication: PLASMA CELL MYELOMA
     Route: 065
  4. HEPARIN [Concomitant]
     Active Substance: HEPARIN SODIUM
     Indication: THROMBOSIS PROPHYLAXIS
     Route: 065
  5. REVLIMID [Suspect]
     Active Substance: LENALIDOMIDE
     Indication: PLASMA CELL MYELOMA
     Dosage: 25 MILLIGRAM
     Route: 048
  6. PEGFILGRASTIM [Concomitant]
     Active Substance: PEGFILGRASTIM
     Indication: PRODUCT USED FOR UNKNOWN INDICATION
     Dosage: 40 MILLIGRAM
     Route: 065
  7. ADRIAMYCIN [Suspect]
     Active Substance: DOXORUBICIN HYDROCHLORIDE
     Route: 065

REACTIONS (42)
  - Neutropenia [Unknown]
  - Atrial fibrillation [Unknown]
  - Arrhythmia [Unknown]
  - Constipation [Unknown]
  - Fatigue [Unknown]
  - Rash [Unknown]
  - Polyneuropathy [Unknown]
  - Sepsis [Unknown]
  - Nausea [Unknown]
  - Muscle spasms [Unknown]
  - Cough [Unknown]
  - Back pain [Unknown]
  - Dry skin [Unknown]
  - Pruritus [Unknown]
  - Febrile neutropenia [Unknown]
  - Pulmonary embolism [Unknown]
  - Plasma cell myeloma [Unknown]
  - Leukopenia [Unknown]
  - Influenza like illness [Unknown]
  - Pneumonia [Unknown]
  - Pyrexia [Unknown]
  - Headache [Unknown]
  - Peripheral sensory neuropathy [Unknown]
  - Bone pain [Unknown]
  - Death [Fatal]
  - Thrombotic microangiopathy [Unknown]
  - Thrombocytopenia [Unknown]
  - Subclavian vein thrombosis [Unknown]
  - Myocardial infarction [Unknown]
  - Anaemia [Unknown]
  - Diarrhoea [Unknown]
  - Respiratory tract infection [Unknown]
  - Infection [Unknown]
  - Embolism venous [Unknown]
  - Haematotoxicity [Unknown]
  - Vomiting [Unknown]
  - Herpes zoster [Unknown]
  - Graft versus host disease [Unknown]
  - Second primary malignancy [Unknown]
  - Adverse event [Unknown]
  - Hyperglycaemia [Unknown]
  - Nasopharyngitis [Unknown]
